FAERS Safety Report 10739475 (Version 2)
Quarter: 2015Q1

REPORT INFORMATION
  Report Type: Spontaneous
  Country: BR (occurrence: BR)
  Receive Date: 20150126
  Receipt Date: 20150127
  Transmission Date: 20150721
  Serious: Yes (Death)
  Sender: FDA-Public Use
  Company Number: BR-B.I. PHARMACEUTICALS,INC./RIDGEFIELD-2015-BI-03869BR

PATIENT
  Age: 59 Year
  Sex: Male
  Weight: 120 kg

DRUGS (2)
  1. SPIRIVA RESPIMAT [Suspect]
     Active Substance: TIOTROPIUM BROMIDE
     Indication: DYSPNOEA
     Dosage: 2 PUF
     Route: 055
     Dates: start: 201501
  2. VANNAIR [Concomitant]
     Active Substance: BUDESONIDE\FORMOTEROL FUMARATE DIHYDRATE
     Indication: DYSPNOEA
     Route: 048
     Dates: start: 201501

REACTIONS (2)
  - Lung neoplasm malignant [Fatal]
  - Off label use [Unknown]

NARRATIVE: CASE EVENT DATE: 201501
